FAERS Safety Report 8830300 (Version 2)
Quarter: 2012Q4

REPORT INFORMATION
  Report Type: 
  Country: US (occurrence: None)
  Receive Date: 20121004
  Receipt Date: 20121011
  Transmission Date: 20130627
  Serious: Yes (Hospitalization)
  Sender: FDA-Public Use
  Company Number: JPI-P-025411

PATIENT
  Age: 50 Year
  Sex: Female
  Weight: 58.06 kg

DRUGS (8)
  1. XYREM [Suspect]
     Indication: CATAPLEXY
     Route: 048
     Dates: start: 20030428
  2. TRAZODONE [Concomitant]
  3. TRIZANIDINE [Concomitant]
  4. ROZEREM [Concomitant]
  5. MILNACIPRAN [Concomitant]
  6. CENTRUM SILVER 50+ [Concomitant]
  7. POTASSIUM CHLORIDE [Concomitant]
  8. ROSUVASTATIN CALCIUM [Concomitant]

REACTIONS (19)
  - Hiatus hernia [None]
  - Gastric operation [None]
  - Surgery [None]
  - Chills [None]
  - Dysgeusia [None]
  - Insomnia [None]
  - Somnolence [None]
  - Dizziness [None]
  - Nausea [None]
  - Headache [None]
  - Enuresis [None]
  - Somnambulism [None]
  - Agitation [None]
  - Mood altered [None]
  - Memory impairment [None]
  - Fall [None]
  - Contusion [None]
  - Anxiety [None]
  - Vitamin D decreased [None]
